FAERS Safety Report 7078450-7 (Version None)
Quarter: 2010Q4

REPORT INFORMATION
  Report Type: 
  Country: None (occurrence: None)
  Receive Date: 20101101
  Receipt Date: 20101101
  Transmission Date: 20110411
  Serious: Yes (Hospitalization)
  Sender: FDA-Public Use
  Company Number: None

PATIENT
  Age: 1 Year
  Sex: Male
  Weight: 12.7007 kg

DRUGS (1)
  1. HYLANDS TEEETHING TABLETS 125 TABLETS HYLANDS [Suspect]
     Indication: TEETHING
     Dates: start: 20101001, end: 20101029

REACTIONS (6)
  - DIARRHOEA [None]
  - HYPERSENSITIVITY [None]
  - INSOMNIA [None]
  - MALAISE [None]
  - PRODUCT QUALITY ISSUE [None]
  - URTICARIA [None]
